FAERS Safety Report 9156421 (Version 1)
Quarter: 2013Q1

REPORT INFORMATION
  Report Type: Spontaneous
  Country: CA (occurrence: None)
  Receive Date: 20130208
  Receipt Date: 20130208
  Transmission Date: 20140127
  Serious: Yes (Other)
  Sender: FDA-Public Use
  Company Number: 2013-000321

PATIENT
  Age: 64 Year
  Sex: Female

DRUGS (3)
  1. ENABLEX [Suspect]
     Route: 048
  2. AMANTADINE [Concomitant]
  3. GABAPENTIN (GABAPENTIN) [Concomitant]

REACTIONS (1)
  - Muscle spasms [None]
